FAERS Safety Report 10691992 (Version 1)
Quarter: 2015Q1

REPORT INFORMATION
  Report Type: Report from Study
  Country: CA (occurrence: CA)
  Receive Date: 20150106
  Receipt Date: 20150106
  Transmission Date: 20150720
  Serious: Yes (Other)
  Sender: FDA-Public Use
  Company Number: CA-AMGEN-CANSL2015000240

PATIENT
  Age: 72 Year
  Sex: Female

DRUGS (1)
  1. PROLIA [Suspect]
     Active Substance: DENOSUMAB
     Indication: OSTEOPOROSIS POSTMENOPAUSAL
     Dosage: 60 MG, Q6MO
     Route: 058
     Dates: start: 20140331

REACTIONS (6)
  - Dizziness [Unknown]
  - Balance disorder [Unknown]
  - Nasal neoplasm [Unknown]
  - Hyperhidrosis [Unknown]
  - Vomiting [Unknown]
  - Tremor [Unknown]

NARRATIVE: CASE EVENT DATE: 20141113
